FAERS Safety Report 18377754 (Version 3)
Quarter: 2021Q1

REPORT INFORMATION
  Report Type: Spontaneous
  Country: US (occurrence: US)
  Receive Date: 20201013
  Receipt Date: 20210202
  Transmission Date: 20210419
  Serious: Yes (Other)
  Sender: FDA-Public Use
  Company Number: US-PFIZER INC-2020393768

PATIENT
  Age: 83 Year
  Sex: Female

DRUGS (2)
  1. LYRICA [Suspect]
     Active Substance: PREGABALIN
     Dosage: 75 MG
  2. ELIQUIS [Suspect]
     Active Substance: APIXABAN
     Dosage: UNK
     Dates: start: 202011

REACTIONS (1)
  - Atrial fibrillation [Unknown]
